FAERS Safety Report 8390179-1 (Version None)
Quarter: 2012Q2

REPORT INFORMATION
  Report Type: 
  Country: None (occurrence: None)
  Receive Date: 20120529
  Receipt Date: 20120525
  Transmission Date: 20120825
  Serious: Yes (Other)
  Sender: FDA-Public Use
  Company Number: US-PFIZER INC-2012127281

PATIENT
  Sex: Male

DRUGS (1)
  1. NORVASC [Suspect]
     Indication: HEART RATE IRREGULAR
     Dosage: UNK

REACTIONS (4)
  - GASTROINTESTINAL INFLAMMATION [None]
  - FIBROMA [None]
  - GINGIVAL HYPERPLASIA [None]
  - MARFAN'S SYNDROME [None]
